FAERS Safety Report 13828995 (Version 3)
Quarter: 2017Q4

REPORT INFORMATION
  Report Type: Spontaneous
  Country: US (occurrence: US)
  Receive Date: 20170803
  Receipt Date: 20171031
  Transmission Date: 20180320
  Serious: No
  Sender: FDA-Public Use
  Company Number: US-APOTEX-2017AP016124

PATIENT
  Age: 54 Year
  Sex: Female

DRUGS (18)
  1. ESCITALOPRAM OXALATE. [Suspect]
     Active Substance: ESCITALOPRAM OXALATE
     Indication: DEPRESSION
     Dosage: 2.5 MG, QD
     Route: 065
  2. DIAZEPAM. [Suspect]
     Active Substance: DIAZEPAM
     Indication: ANXIOLYTIC THERAPY
     Route: 065
  3. RISPERIDONE. [Suspect]
     Active Substance: RISPERIDONE
     Indication: PSYCHOTIC DISORDER
     Route: 065
  4. LORAZEPAM. [Suspect]
     Active Substance: LORAZEPAM
     Indication: ANXIOLYTIC THERAPY
     Dosage: 0.5 MG, QD
     Route: 065
  5. OXCARBAZEPINE. [Suspect]
     Active Substance: OXCARBAZEPINE
     Indication: SEIZURE
     Route: 065
  6. FLURAZEPAM [Suspect]
     Active Substance: FLURAZEPAM\FLURAZEPAM HYDROCHLORIDE
     Indication: ANXIOLYTIC THERAPY
  7. CITALOPRAM [Suspect]
     Active Substance: CITALOPRAM HYDROBROMIDE
     Indication: DEPRESSION
     Route: 065
  8. BUSPIPRONE HYDROCHLORIDE TABLETS USP [Suspect]
     Active Substance: BUSPIRONE HYDROCHLORIDE
     Indication: ANXIOLYTIC THERAPY
     Dosage: 15 MG, BID
     Route: 065
  9. NORTRIPTYLINE [Suspect]
     Active Substance: NORTRIPTYLINE
     Indication: DEPRESSION
     Dosage: 75 MG, QD
     Route: 065
  10. TOPIRAMATE. [Suspect]
     Active Substance: TOPIRAMATE
     Indication: SEIZURE
     Route: 065
  11. VENLAFAXINE [Suspect]
     Active Substance: VENLAFAXINE HYDROCHLORIDE
     Indication: DEPRESSION
     Route: 065
  12. MIRTAZAPINE. [Suspect]
     Active Substance: MIRTAZAPINE
     Indication: DEPRESSION
     Dosage: 30 MG, UNK
     Route: 065
  13. PAROXETINE HYDROCHLORIDE. [Suspect]
     Active Substance: PAROXETINE HYDROCHLORIDE
     Indication: DEPRESSION
     Route: 065
  14. QUETIAPINE. [Suspect]
     Active Substance: QUETIAPINE
     Indication: PSYCHOTIC DISORDER
     Route: 065
  15. GABAPENTIN. [Suspect]
     Active Substance: GABAPENTIN
     Indication: SEIZURE
     Dosage: 200 MG, QD
     Route: 065
  16. OLANZAPINE. [Suspect]
     Active Substance: OLANZAPINE
     Indication: PSYCHOTIC DISORDER
     Route: 065
  17. SERTRALINE HYDROCHLORIDE. [Suspect]
     Active Substance: SERTRALINE HYDROCHLORIDE
     Indication: DEPRESSION
     Dosage: 25 MG, QD
     Route: 065
  18. CLONAZEPAM. [Suspect]
     Active Substance: CLONAZEPAM
     Indication: ANXIOLYTIC THERAPY
     Route: 065

REACTIONS (5)
  - CYP2D6 polymorphism [Unknown]
  - CYP2C19 polymorphism [Unknown]
  - CYP2C9 polymorphism [Unknown]
  - Drug ineffective [Unknown]
  - Drug intolerance [Unknown]
